FAERS Safety Report 19459374 (Version 4)
Quarter: 2022Q3

REPORT INFORMATION
  Report Type: Spontaneous
  Country: IN (occurrence: IN)
  Receive Date: 20210624
  Receipt Date: 20220902
  Transmission Date: 20221027
  Serious: Yes (Hospitalization, Other)
  Sender: FDA-Public Use
  Company Number: IN-PFIZER INC-2021283048

PATIENT
  Age: 79 Year
  Sex: Male
  Weight: 42 kg

DRUGS (12)
  1. DACOMITINIB [Suspect]
     Active Substance: DACOMITINIB
     Indication: Lung adenocarcinoma
     Dosage: 45 MG ONCE DAILY EMPTY STOMACH X3MONTHS
     Route: 048
     Dates: start: 20210312
  2. DACOMITINIB [Suspect]
     Active Substance: DACOMITINIB
     Dosage: 30 MG, ALTERNATE DAY
     Route: 048
     Dates: start: 20210515
  3. DACOMITINIB [Suspect]
     Active Substance: DACOMITINIB
     Dosage: 30 MG, ALTERNATE DAY
     Route: 048
     Dates: start: 20210615
  4. FOLIC ACID [Concomitant]
     Active Substance: FOLIC ACID
     Dosage: 5 MG, DAILY
  5. CREMAFFIN PLUS [Concomitant]
     Indication: Constipation
     Dosage: 10 ML PO OD HS/SOS
     Route: 048
  6. LOPERAMIDE HYDROCHLORIDE [Concomitant]
     Active Substance: LOPERAMIDE HYDROCHLORIDE
     Indication: Diarrhoea
     Dosage: 1 DF, DAILY (QDS/SOS)
  7. MUCOPAIN [Concomitant]
     Dosage: UNK
  8. CLOTRIMAZOLE [Concomitant]
     Active Substance: CLOTRIMAZOLE
     Dosage: UNK
  9. NEOGADINE [Concomitant]
     Dosage: 5 ML, 2X/DAY (5ML BDAC X 1 MONTH)
  10. POLYBION [VITAMINS NOS] [Concomitant]
     Dosage: 5 ML, 2X/DAY (5ML BDPC)
  11. ANCORIL [Concomitant]
     Dosage: 5 ML, 2X/DAY (BD/SB)
  12. CCM [Concomitant]
     Dosage: 1 DF, 1X/DAY

REACTIONS (11)
  - Drug intolerance [Unknown]
  - Fatigue [Unknown]
  - Stomatitis [Unknown]
  - Decreased appetite [Unknown]
  - Pelvic fracture [Unknown]
  - Diarrhoea [Unknown]
  - Skin ulcer [Unknown]
  - Haemoptysis [Unknown]
  - Haemoglobin decreased [Unknown]
  - Dyspnoea [Unknown]
  - Off label use [Unknown]

NARRATIVE: CASE EVENT DATE: 20210101
